FAERS Safety Report 14153688 (Version 1)
Quarter: 2017Q4

REPORT INFORMATION
  Report Type: Spontaneous
  Country: US (occurrence: US)
  Receive Date: 20171102
  Receipt Date: 20171102
  Transmission Date: 20180321
  Serious: No
  Sender: FDA-Public Use
  Company Number: US-SA-2017SA184602

PATIENT
  Age: 68 Year
  Sex: Male
  Weight: 106 kg

DRUGS (7)
  1. MONTELUKAST [Concomitant]
     Active Substance: MONTELUKAST SODIUM
  2. TRIAMCINOLONE [Concomitant]
     Active Substance: TRIAMCINOLONE
  3. PERMETHRIN. [Concomitant]
     Active Substance: PERMETHRIN
  4. PRALUENT [Suspect]
     Active Substance: ALIROCUMAB
     Indication: TYPE V HYPERLIPIDAEMIA
     Route: 058
     Dates: start: 201608, end: 201709
  5. PREDNISONE. [Concomitant]
     Active Substance: PREDNISONE
  6. IVERMECTIN. [Concomitant]
     Active Substance: IVERMECTIN
  7. ALIROCUMAB PREFILLED PEN [Suspect]
     Active Substance: ALIROCUMAB
     Indication: TYPE V HYPERLIPIDAEMIA
     Dates: start: 201608, end: 201709

REACTIONS (1)
  - Urticaria [Unknown]

NARRATIVE: CASE EVENT DATE: 201707
